FAERS Safety Report 16667275 (Version 1)
Quarter: 2019Q3

REPORT INFORMATION
  Report Type: Spontaneous
  Country: US (occurrence: US)
  Receive Date: 20190805
  Receipt Date: 20190805
  Transmission Date: 20191004
  Serious: No
  Sender: FDA-Public Use
  Company Number: US-TEVA-2019-US-1088130

PATIENT
  Sex: Female

DRUGS (1)
  1. IRBESARTAN /HYDROCHLOROTHIAZIDE [Suspect]
     Active Substance: HYDROCHLOROTHIAZIDE\IRBESARTAN
     Indication: BLOOD PRESSURE MEASUREMENT
     Dosage: DOSE STRENGTH IRBESARTAN 150 MG, HYDROCHLOROTHIAZIDE 12.5 MG
     Route: 065

REACTIONS (1)
  - Drug ineffective [Unknown]
